FAERS Safety Report 14714999 (Version 2)
Quarter: 2018Q4

REPORT INFORMATION
  Report Type: Report from Study
  Country: US (occurrence: US)
  Receive Date: 20180404
  Receipt Date: 20181116
  Transmission Date: 20190204
  Serious: Yes (Death, Other)
  Sender: FDA-Public Use
  Company Number: US-ASTELLAS-2018US015922

PATIENT
  Age: 74 Year
  Sex: Female

DRUGS (1)
  1. MIRABEGRON [Suspect]
     Active Substance: MIRABEGRON
     Indication: PRODUCT USED FOR UNKNOWN INDICATION
     Route: 048
     Dates: end: 20181109

REACTIONS (8)
  - Fall [Unknown]
  - Oxygen saturation decreased [Unknown]
  - Sedation [Unknown]
  - Death [Fatal]
  - Blood glucose decreased [Unknown]
  - Balance disorder [Unknown]
  - Confusional state [Unknown]
  - Thinking abnormal [Unknown]

NARRATIVE: CASE EVENT DATE: 201801
